FAERS Safety Report 20354523 (Version 3)
Quarter: 2022Q1

REPORT INFORMATION
  Report Type: Spontaneous
  Country: JP (occurrence: JP)
  Receive Date: 20220120
  Receipt Date: 20220214
  Transmission Date: 20220423
  Serious: Yes (Hospitalization)
  Sender: FDA-Public Use
  Company Number: JP-CELGENE-JPN-20220103368

PATIENT
  Age: 51 Year
  Sex: Male
  Weight: 83.3 kg

DRUGS (27)
  1. ABRAXANE [Suspect]
     Active Substance: PACLITAXEL
     Indication: Pancreatic carcinoma
     Dosage: 250 MILLIGRAM
     Route: 065
     Dates: start: 20210811
  2. ABRAXANE [Suspect]
     Active Substance: PACLITAXEL
     Dosage: 240 MILLIGRAM
     Route: 065
     Dates: start: 20211020
  3. NIVOLUMAB [Suspect]
     Active Substance: NIVOLUMAB
     Indication: Pancreatic carcinoma
     Dosage: 480 MILLIGRAM
     Route: 065
     Dates: start: 20210811
  4. GEMCITABINE [Suspect]
     Active Substance: GEMCITABINE
     Indication: Pancreatic carcinoma
     Dosage: 2000 MILLIGRAM
     Route: 065
     Dates: start: 20210811
  5. BMS-986310 [Suspect]
     Active Substance: BMS-986310
     Indication: Pancreatic carcinoma
     Dosage: 40 MILLIGRAM
     Route: 065
     Dates: start: 20210811
  6. VONOPRAZAN FUMARATE [Concomitant]
     Active Substance: VONOPRAZAN FUMARATE
     Indication: Duodenal ulcer
     Dosage: 20 MILLIGRAM
     Route: 048
     Dates: start: 20210813
  7. VONOPRAZAN FUMARATE [Concomitant]
     Active Substance: VONOPRAZAN FUMARATE
     Indication: Prophylaxis of nausea and vomiting
     Route: 048
     Dates: start: 20210811
  8. DEXAMETHASONE [Concomitant]
     Active Substance: DEXAMETHASONE
     Indication: Prophylaxis of nausea and vomiting
     Route: 048
     Dates: start: 20210811
  9. HEPARINOID [Concomitant]
     Indication: Eczema
     Route: 065
     Dates: start: 20210818
  10. MOMETASONE FUROATE [Concomitant]
     Active Substance: MOMETASONE FUROATE
     Indication: Eczema
     Route: 065
     Dates: start: 20210818
  11. CLOBETASOL PROPIONATE [Concomitant]
     Active Substance: CLOBETASOL PROPIONATE
     Indication: Pyrexia
     Route: 048
     Dates: start: 20210822
  12. CLOBETASOL PROPIONATE [Concomitant]
     Active Substance: CLOBETASOL PROPIONATE
     Route: 048
     Dates: start: 20210825
  13. CLOBETASOL PROPIONATE [Concomitant]
     Active Substance: CLOBETASOL PROPIONATE
     Route: 048
     Dates: start: 20210926
  14. CLOBETASOL PROPIONATE [Concomitant]
     Active Substance: CLOBETASOL PROPIONATE
     Route: 048
     Dates: start: 20210929
  15. METOCLOPRAMIDE [Concomitant]
     Active Substance: METOCLOPRAMIDE
     Indication: Nausea
     Route: 065
     Dates: start: 20210824
  16. METOCLOPRAMIDE [Concomitant]
     Active Substance: METOCLOPRAMIDE
     Indication: Constipation
     Route: 065
     Dates: start: 20210921
  17. MAGNESIUM OXIDE [Concomitant]
     Active Substance: MAGNESIUM OXIDE
     Indication: Constipation
     Route: 048
     Dates: start: 20210915
  18. MAGNESIUM OXIDE [Concomitant]
     Active Substance: MAGNESIUM OXIDE
     Indication: Nausea
     Route: 048
     Dates: start: 20210906
  19. SENNOSIDES A AND B [Concomitant]
     Active Substance: SENNOSIDES A AND B
     Indication: Nausea
     Route: 065
     Dates: start: 20210906
  20. PROCHLORPERAZINE MALEATE [Concomitant]
     Active Substance: PROCHLORPERAZINE MALEATE
     Indication: Pyrexia
     Dosage: 200 MILLIGRAM
     Route: 065
     Dates: start: 20211030
  21. TEBIPENEM PIVOXIL [Concomitant]
     Active Substance: TEBIPENEM PIVOXIL
     Indication: Product used for unknown indication
     Dosage: 200 MILLIGRAM
     Route: 065
     Dates: start: 20211206
  22. FEXOFENADINE HYDROCHLORIDE [Concomitant]
     Active Substance: FEXOFENADINE HYDROCHLORIDE
     Indication: Eczema
     Dosage: 200 MILLIGRAM
     Route: 048
     Dates: start: 20211117
  23. PIPERACILLIN SODIUM\TAZOBACTAM SODIUM [Concomitant]
     Active Substance: PIPERACILLIN SODIUM\TAZOBACTAM SODIUM
     Indication: Product used for unknown indication
     Dosage: 13.5 GRAM
     Route: 065
  24. CALCIUM CHLORIDE ANHYDROUS\POTASSIUM CHLORIDE\SODIUM CHLORIDE\SODIUM L [Concomitant]
     Active Substance: CALCIUM CHLORIDE ANHYDROUS\POTASSIUM CHLORIDE\SODIUM CHLORIDE\SODIUM LACTATE
     Indication: Product used for unknown indication
     Dosage: 500 ML
     Route: 065
  25. ORAPENEM [Concomitant]
     Active Substance: TEBIPENEM PIVOXIL
     Indication: Product used for unknown indication
     Dosage: 800 MILLIGRAM
     Route: 065
  26. CALONAL [Concomitant]
     Active Substance: ACETAMINOPHEN
     Indication: Product used for unknown indication
     Dosage: 800 MILLIGRAM
     Route: 065
  27. ALOXI [Concomitant]
     Active Substance: PALONOSETRON HYDROCHLORIDE
     Indication: Prophylaxis of nausea and vomiting
     Dosage: 0.75MG/50ML
     Route: 065
     Dates: start: 20210811

REACTIONS (5)
  - Cholangitis [Recovered/Resolved]
  - Liver abscess [Recovered/Resolved]
  - Cholangitis [Recovering/Resolving]
  - Liver abscess [Recovering/Resolving]
  - Fatigue [Not Recovered/Not Resolved]

NARRATIVE: CASE EVENT DATE: 20210825
